FAERS Safety Report 25904585 (Version 1)
Quarter: 2025Q4

REPORT INFORMATION
  Report Type: Spontaneous
  Country: AU (occurrence: AU)
  Receive Date: 20251010
  Receipt Date: 20251010
  Transmission Date: 20260117
  Serious: Yes (Other)
  Sender: BOEHRINGER INGELHEIM
  Company Number: AU-BoehringerIngelheim-2025-BI-094416

PATIENT
  Age: 87 Year
  Sex: Male
  Weight: 84 kg

DRUGS (12)
  1. JARDIANCE [Suspect]
     Active Substance: EMPAGLIFLOZIN
     Indication: Product used for unknown indication
     Dosage: FORM STRENGTH: 10 MILLIGRAM
     Dates: start: 20240814, end: 20240828
  2. ALLOPURINOL [Concomitant]
     Active Substance: ALLOPURINOL
     Dosage: 100MG IN THE MORNING
  3. AMITRIPTYLINE [Concomitant]
     Active Substance: AMITRIPTYLINE
     Dosage: 50MG IN THE EVENING
  4. AMLODIPINE [Concomitant]
     Active Substance: AMLODIPINE BESYLATE
     Dosage: 5MG IN THE MORNING
  5. ATORVASTATIN [Concomitant]
     Active Substance: ATORVASTATIN
  6. PREGABALIN [Concomitant]
     Active Substance: PREGABALIN
  7. PROPRANOLOL [Concomitant]
     Active Substance: PROPRANOLOL HYDROCHLORIDE
  8. CANDESARTAN [Concomitant]
     Active Substance: CANDESARTAN
  9. FENOFIBRATE [Concomitant]
     Active Substance: FENOFIBRATE
  10. METFORMIN [Concomitant]
     Active Substance: METFORMIN HYDROCHLORIDE
  11. GLICLAZIDE [Concomitant]
     Active Substance: GLICLAZIDE
  12. PANTOPRAZOLE [Concomitant]
     Active Substance: PANTOPRAZOLE

REACTIONS (2)
  - Vomiting [Recovered/Resolved]
  - Abdominal pain [Recovered/Resolved]

NARRATIVE: CASE EVENT DATE: 20240814
